FAERS Safety Report 8368267-5 (Version None)
Quarter: 2012Q2

REPORT INFORMATION
  Report Type: 
  Country: None (occurrence: None)
  Receive Date: 20120517
  Receipt Date: 20120510
  Transmission Date: 20120825
  Serious: Yes (Hospitalization, Other)
  Sender: FDA-Public Use
  Company Number: US-BAYER-2012-002782

PATIENT
  Age: 28 Year
  Sex: Female
  Weight: 108.84 kg

DRUGS (12)
  1. DROSPIRENONE AND ETHINYL ESTRADIOL [Suspect]
     Dosage: UNK
     Route: 048
     Dates: start: 20090201, end: 20090301
  2. TORADOL [Concomitant]
     Indication: PAIN
     Dosage: 10 MG, UNK
     Route: 048
  3. PENICILLIN VK [Concomitant]
     Dosage: 500 MG, UNK
     Route: 048
     Dates: start: 20091120
  4. CLOTRIMAZOLE [Concomitant]
     Route: 067
  5. METFORMIN HCL [Concomitant]
     Dosage: 1500 MG, UNK
     Route: 048
  6. TYLENOL W/ CODEINE NO. 3 [Concomitant]
     Indication: PAIN
     Route: 048
  7. PRILOSEC [Concomitant]
     Dosage: 20 MG, UNK
     Route: 048
  8. PROPOXYPHENE NAPSYLATE W/ ACETAMINOPHEN [Concomitant]
     Indication: PAIN
     Route: 048
  9. FLEXERIL [Concomitant]
     Dosage: 10 MG, UNK
     Route: 048
  10. AZITHROMYCIN [Concomitant]
     Dosage: 500 MG, UNK
     Dates: start: 20081120
  11. CARAFATE [Concomitant]
     Route: 048
  12. DARVOCET [Concomitant]
     Dosage: 10 MG, UNK
     Route: 048

REACTIONS (5)
  - GALLBLADDER DISORDER [None]
  - CHOLECYSTITIS CHRONIC [None]
  - INJURY [None]
  - PAIN [None]
  - MENTAL DISORDER [None]
